FAERS Safety Report 18293557 (Version 6)
Quarter: 2020Q4

REPORT INFORMATION
  Report Type: Spontaneous
  Country: GB (occurrence: GB)
  Receive Date: 20200922
  Receipt Date: 20201118
  Transmission Date: 20210113
  Serious: Yes (Disabling, Other)
  Sender: FDA-Public Use
  Company Number: GB-009507513-2009GBR007622

PATIENT
  Age: 33 Year
  Sex: Female
  Weight: 82.55 kg

DRUGS (3)
  1. MOMETASONE FUROATE. [Suspect]
     Active Substance: MOMETASONE FUROATE
     Indication: ECZEMA
     Dosage: UNK
     Route: 048
  2. CORTICOSTEROIDS (UNSPECIFIED) [Suspect]
     Active Substance: UNSPECIFIED INGREDIENT
     Indication: ECZEMA
     Dosage: UNK
     Route: 048
  3. ELOCON [Suspect]
     Active Substance: MOMETASONE FUROATE
     Indication: ECZEMA
     Dosage: UNK
     Route: 061
     Dates: start: 20100101, end: 20180321

REACTIONS (23)
  - Pain [Unknown]
  - Application site pain [Unknown]
  - Erythema [Recovering/Resolving]
  - Fatigue [Recovering/Resolving]
  - Skin weeping [Recovering/Resolving]
  - Chills [Recovering/Resolving]
  - Dry skin [Recovering/Resolving]
  - Depression [Recovering/Resolving]
  - Pyrexia [Recovering/Resolving]
  - Skin tightness [Unknown]
  - Eye pruritus [Recovered/Resolved]
  - Skin exfoliation [Recovering/Resolving]
  - Rosacea [Recovering/Resolving]
  - Swelling [Recovering/Resolving]
  - Steroid withdrawal syndrome [Unknown]
  - Skin infection [Recovering/Resolving]
  - Swelling face [Unknown]
  - Eye pruritus [Unknown]
  - Skin hypertrophy [Recovering/Resolving]
  - Abnormal loss of weight [Recovering/Resolving]
  - Lacrimation increased [Recovered/Resolved]
  - Therapeutic product effect decreased [Unknown]
  - Skin burning sensation [Unknown]

NARRATIVE: CASE EVENT DATE: 20180321
